FAERS Safety Report 9187451 (Version 1)
Quarter: 2013Q1

REPORT INFORMATION
  Report Type: Spontaneous
  Country: BE (occurrence: BE)
  Receive Date: 20130325
  Receipt Date: 20130325
  Transmission Date: 20140127
  Serious: Yes (Life-Threatening, Hospitalization)
  Sender: FDA-Public Use
  Company Number: BE-JNJFOC-20130309058

PATIENT
  Age: 72 Year
  Sex: Female
  Weight: 70 kg

DRUGS (11)
  1. XARELTO [Suspect]
     Indication: CARDIAC VALVE DISEASE
     Route: 048
     Dates: start: 20120927
  2. LANOXIN [Concomitant]
     Dosage: 0.125, OM
     Route: 065
  3. EMCONCOR [Concomitant]
     Dosage: OM
     Route: 065
  4. ELTHYRONE [Concomitant]
     Dosage: OM
     Route: 065
  5. DEPAKIN CHRONO [Concomitant]
     Dosage: 2,UNK,HS
     Route: 065
  6. LASIX [Concomitant]
     Dosage: 20,UNK,OM
     Route: 065
  7. DOMINAL [Concomitant]
     Dosage: 40,UNK,HS
     Route: 065
  8. ABILIFY [Concomitant]
     Dosage: 1,UNK,OM
     Route: 065
  9. PROLOPA [Concomitant]
     Dosage: 62.5
     Route: 065
  10. COZAAR [Concomitant]
     Dosage: 50
     Route: 065
  11. AMLOR [Concomitant]
     Dosage: 4 UNK, OM
     Route: 065

REACTIONS (7)
  - Shock haemorrhagic [Unknown]
  - Anaemia [Unknown]
  - Anticoagulation drug level above therapeutic [Unknown]
  - Multi-organ failure [Recovering/Resolving]
  - Rectal haemorrhage [Unknown]
  - Gastrointestinal disorder [Unknown]
  - Procedural haemorrhage [Unknown]
